FAERS Safety Report 7427197-3 (Version None)
Quarter: 2011Q2

REPORT INFORMATION
  Report Type: 
  Country: None (occurrence: None)
  Receive Date: 20110420
  Receipt Date: 20110414
  Transmission Date: 20111010
  Serious: Yes (Death, Hospitalization, Other)
  Sender: FDA-Public Use
  Company Number: JP-JNJFOC-20110304586

PATIENT
  Sex: Male
  Weight: 48 kg

DRUGS (47)
  1. CONTOMIN [Concomitant]
     Route: 048
  2. SORENTMIN [Concomitant]
     Indication: AGITATION
     Route: 048
  3. SOFMIN AMEL [Concomitant]
     Route: 048
  4. SOFMIN AMEL [Concomitant]
     Route: 048
  5. DIAZEPAM [Concomitant]
     Route: 048
  6. DIAZEPAM [Concomitant]
     Route: 048
  7. INVEGA [Suspect]
     Route: 048
  8. SOFMIN AMEL [Concomitant]
     Route: 048
  9. SOFMIN AMEL [Concomitant]
     Indication: HALLUCINATION
     Route: 048
  10. LAXATIVE [Concomitant]
     Route: 065
  11. INVEGA [Suspect]
     Route: 048
  12. SOFMIN AMEL [Concomitant]
     Indication: AGITATION
     Route: 048
  13. DIAZEPAM [Concomitant]
     Indication: SCHIZOPHRENIA
     Route: 048
  14. DIAZEPAM [Concomitant]
     Indication: AGITATION
     Route: 048
  15. CARBAMAZEPINE [Concomitant]
     Indication: HALLUCINATION
     Route: 048
  16. MAGLAX [Concomitant]
     Indication: CONSTIPATION
     Route: 048
  17. INVEGA [Suspect]
     Route: 048
  18. RISPERIDONE [Suspect]
     Indication: PRODUCT USED FOR UNKNOWN INDICATION
     Route: 048
  19. FLUNITRAZEPAM [Concomitant]
     Indication: HALLUCINATION
     Route: 048
  20. SORENTMIN [Concomitant]
     Indication: SCHIZOPHRENIA
     Route: 048
  21. SORENTMIN [Concomitant]
     Indication: HALLUCINATION
     Route: 048
  22. SOFMIN AMEL [Concomitant]
     Route: 048
  23. CARBAMAZEPINE [Concomitant]
     Route: 048
  24. CARBAMAZEPINE [Concomitant]
     Route: 048
  25. GASMET [Concomitant]
     Route: 048
  26. DAI-KENCHU-TO [Concomitant]
     Indication: CONSTIPATION
     Route: 048
  27. INVEGA [Suspect]
     Indication: SCHIZOPHRENIA
     Route: 048
  28. RISPERIDONE [Suspect]
     Route: 048
  29. FLUNITRAZEPAM [Concomitant]
     Indication: SCHIZOPHRENIA
     Route: 048
  30. SOFMIN AMEL [Concomitant]
     Route: 048
  31. SOFMIN AMEL [Concomitant]
     Route: 048
  32. DIAZEPAM [Concomitant]
     Indication: HALLUCINATION
     Route: 048
  33. CARBAMAZEPINE [Concomitant]
     Indication: AGITATION
     Route: 048
  34. SENNOSIDE [Concomitant]
     Indication: CONSTIPATION
     Route: 048
  35. INVEGA [Suspect]
     Indication: AGITATION
     Route: 048
  36. SOFMIN AMEL [Concomitant]
     Route: 048
  37. DIAZEPAM [Concomitant]
     Route: 048
  38. CARBAMAZEPINE [Concomitant]
     Indication: SCHIZOPHRENIA
     Route: 048
  39. AKINETON [Concomitant]
     Indication: PARKINSONISM
     Route: 048
  40. AKINETON [Concomitant]
     Route: 048
  41. SOFMIN AMEL [Concomitant]
     Indication: SCHIZOPHRENIA
     Route: 048
  42. SOFMIN AMEL [Concomitant]
     Route: 048
  43. SOFMIN AMEL [Concomitant]
     Route: 048
  44. CARBAMAZEPINE [Concomitant]
     Route: 048
  45. GASMET [Concomitant]
     Indication: GASTRITIS
     Route: 048
  46. INVEGA [Suspect]
     Indication: HALLUCINATION
     Route: 048
  47. FLUNITRAZEPAM [Concomitant]
     Indication: AGITATION
     Route: 048

REACTIONS (6)
  - SALIVARY HYPERSECRETION [None]
  - PNEUMONIA ASPIRATION [None]
  - CONSTIPATION [None]
  - ABNORMAL BEHAVIOUR [None]
  - FALL [None]
  - CARDIAC ARREST [None]
